FAERS Safety Report 5912343-0 (Version None)
Quarter: 2008Q4

REPORT INFORMATION
  Report Type: 
  Country: None (occurrence: None)
  Receive Date: 20081006
  Receipt Date: 20080918
  Transmission Date: 20090506
  Serious: Yes (Hospitalization)
  Sender: FDA-Public Use
  Company Number: ADE2008-0315

PATIENT
  Sex: Male
  Weight: 3.5 kg

DRUGS (7)
  1. AMOXICILLIN [Suspect]
     Indication: ASTHMA
     Dosage: TRANSPLAC
     Route: 064
  2. AMINOPHYLLINE [Suspect]
     Indication: ASTHMA
     Dosage: TRANSPLAC
     Route: 064
  3. ATROVENT [Suspect]
     Indication: ASTHMA
     Dosage: TRANSPLAC
     Route: 064
  4. CLARITHROMYCIN [Suspect]
     Indication: ASTHMA
     Dosage: TRANSPLAC
     Route: 064
  5. HYDROCORTISONE [Suspect]
     Indication: ASTHMA
     Dosage: TRANSPLAC
     Route: 064
  6. MAGNESIUM SULFATE [Suspect]
     Indication: ASTHMA
     Dosage: TRANSPLAC
     Route: 064
  7. SALBUTAMOL SULPHATE [Suspect]
     Indication: ASTHMA
     Dosage: TRANSPLAC
     Route: 064

REACTIONS (5)
  - CAESAREAN SECTION [None]
  - FOETAL DISTRESS SYNDROME [None]
  - FOETAL HEART RATE DECELERATION [None]
  - MATERNAL DRUGS AFFECTING FOETUS [None]
  - TACHYCARDIA FOETAL [None]
